FAERS Safety Report 7342971-X (Version None)
Quarter: 2011Q1

REPORT INFORMATION
  Report Type: 
  Country: None (occurrence: None)
  Receive Date: 20110310
  Receipt Date: 20110225
  Transmission Date: 20110831
  Serious: Yes (Hospitalization)
  Sender: FDA-Public Use
  Company Number: PHHY2011US15873

PATIENT
  Sex: Male

DRUGS (13)
  1. CALCIUM ACETATE [Concomitant]
  2. AMITRIPTYLINE [Concomitant]
  3. VERAPAMIL [Concomitant]
  4. PREVATINE [Concomitant]
  5. GLIPIZIDE [Concomitant]
  6. FOSAMAX [Concomitant]
     Dosage: 40 MG, UNK
  7. NEORAL [Suspect]
     Indication: RENAL FAILURE CHRONIC
     Dosage: 25 MG
     Dates: start: 20100913, end: 20110117
  8. MYFORTIC [Suspect]
     Indication: RENAL FAILURE CHRONIC
     Dosage: UNK
  9. MULTI-VITAMINS [Concomitant]
  10. ALLOPURINOL [Concomitant]
  11. PREDNISONE TAB [Concomitant]
  12. COUMADIN [Concomitant]
  13. IMDUR [Concomitant]

REACTIONS (1)
  - RENAL FAILURE [None]
